APPROVED DRUG PRODUCT: PAROXETINE HYDROCHLORIDE
Active Ingredient: PAROXETINE HYDROCHLORIDE
Strength: EQ 40MG BASE
Dosage Form/Route: TABLET;ORAL
Application: A077082 | Product #004
Applicant: TEVA PHARMACEUTICALS USA
Approved: Jun 29, 2007 | RLD: No | RS: No | Type: DISCN